FAERS Safety Report 12289320 (Version 1)
Quarter: 2016Q2

REPORT INFORMATION
  Report Type: Spontaneous
  Country: US (occurrence: None)
  Receive Date: 20160420
  Receipt Date: 20160420
  Transmission Date: 20160815
  Serious: Yes (Life-Threatening, Hospitalization)
  Sender: FDA-Public Use
  Company Number: None

PATIENT
  Age: 61 Year
  Sex: Female
  Weight: 96.62 kg

DRUGS (3)
  1. DIPHENHYDRAMINE. [Concomitant]
     Active Substance: DIPHENHYDRAMINE
  2. DORZOLAMIDE [Concomitant]
     Active Substance: DORZOLAMIDE
  3. COMBIGAN [Suspect]
     Active Substance: BRIMONIDINE TARTRATE\TIMOLOL MALEATE
     Indication: GLAUCOMA
     Route: 031
     Dates: start: 20150923, end: 20160405

REACTIONS (8)
  - Confusional state [None]
  - Hypoacusis [None]
  - Toothache [None]
  - Feeling abnormal [None]
  - Speech disorder [None]
  - Central nervous system lesion [None]
  - Nervousness [None]
  - Headache [None]

NARRATIVE: CASE EVENT DATE: 20160406
